FAERS Safety Report 5558501-9 (Version None)
Quarter: 2007Q4

REPORT INFORMATION
  Report Type: 
  Country: None (occurrence: None)
  Receive Date: 20071214
  Receipt Date: 20071204
  Transmission Date: 20080405
  Serious: Yes (Hospitalization)
  Sender: FDA-Public Use
  Company Number: US-PFIZER INC-2007102443

PATIENT
  Sex: Female

DRUGS (2)
  1. XALATAN [Suspect]
     Indication: GLAUCOMA
     Dosage: DAILY DOSE:2DROP
     Route: 047
  2. DRUG, UNSPECIFIED [Concomitant]

REACTIONS (1)
  - KNEE ARTHROPLASTY [None]
